FAERS Safety Report 9613105 (Version 1)
Quarter: 2013Q4

REPORT INFORMATION
  Report Type: Spontaneous
  Country: CN (occurrence: CN)
  Receive Date: 20131010
  Receipt Date: 20131010
  Transmission Date: 20140711
  Serious: Yes (Death, Other)
  Sender: FDA-Public Use
  Company Number: PHHY2013CN110300

PATIENT
  Sex: Male

DRUGS (8)
  1. VINCRISTINE [Suspect]
     Indication: LANGERHANS^ CELL HISTIOCYTOSIS
     Dosage: 1.4 MG/M2, D1
  2. VINCRISTINE [Suspect]
     Dosage: 1.4 MG/M2, D1
  3. PREDNISONE [Suspect]
     Indication: LANGERHANS^ CELL HISTIOCYTOSIS
     Dosage: 100 MG/M2, D1-5
  4. PREDNISONE [Suspect]
     Dosage: 100 MG/M2, D1-5
  5. ETOPOSIDE [Suspect]
     Indication: LANGERHANS^ CELL HISTIOCYTOSIS
     Dosage: 100MG, D1-3
  6. DOXORUBICIN [Suspect]
     Indication: LANGERHANS^ CELL HISTIOCYTOSIS
     Dosage: 50 MG/M2, D1
  7. CYCLOPHOSPHAMIDE [Suspect]
     Indication: LANGERHANS^ CELL HISTIOCYTOSIS
     Dosage: 750 MG/M2, D1
  8. CYCLOPHOSPHAMIDE [Suspect]
     Dosage: 750 MG/M2, D1

REACTIONS (3)
  - Death [Fatal]
  - Langerhans^ cell histiocytosis [Unknown]
  - Bone marrow failure [Unknown]
